FAERS Safety Report 20074717 (Version 1)
Quarter: 2021Q4

REPORT INFORMATION
  Report Type: Spontaneous
  Country: GB (occurrence: GB)
  Receive Date: 20211116
  Receipt Date: 20211116
  Transmission Date: 20220303
  Serious: Yes (Other)
  Sender: FDA-Public Use
  Company Number: None

PATIENT

DRUGS (18)
  1. IBUPROFEN [Suspect]
     Active Substance: IBUPROFEN
     Indication: Product used for unknown indication
     Route: 065
     Dates: start: 20211106
  2. ALLOPURINOL [Concomitant]
     Active Substance: ALLOPURINOL
     Dosage: ONE DAILY
     Dates: start: 20180406
  3. AMLODIPINE [Concomitant]
     Active Substance: AMLODIPINE BESYLATE
     Dosage: TAKE ONE DAILY
     Dates: start: 20201209
  4. CLOPIDOGREL [Concomitant]
     Active Substance: CLOPIDOGREL BISULFATE
     Dosage: TAKE ONE ONCE DAILY
     Dates: start: 20160707
  5. COLCHICINE [Concomitant]
     Active Substance: COLCHICINE
     Dosage: ONE UP TO 4 TIMES DAILY UNTIL SYMPTOMS RELIEVED...
     Dates: start: 20190415
  6. EZETIMIBE [Concomitant]
     Active Substance: EZETIMIBE
     Dosage: TAKE ONE DAILY
     Dates: start: 20210330
  7. FERROUS FUMARATE [Concomitant]
     Active Substance: FERROUS FUMARATE
     Dosage: EVERY DAY
     Dates: start: 20190423
  8. FOLIC ACID [Concomitant]
     Active Substance: FOLIC ACID
     Dosage: ONE PER WEEK
     Dates: start: 20190611
  9. FUROSEMIDE [Concomitant]
     Active Substance: FUROSEMIDE
     Dosage: TAKE ONE EACH MORNING
     Dates: start: 20210318
  10. GAVISCON ADVANCED [Concomitant]
     Dosage: 5ML - 10ML 4 TIMES/DAY
     Dates: start: 20210730
  11. IBUPROFEN [Concomitant]
     Active Substance: IBUPROFEN
     Dosage: TAKE ONE TABLET THREE TIMES A DAY. TAKE WITH OR
     Dates: start: 20211105
  12. LACTULOSE [Concomitant]
     Active Substance: LACTULOSE
     Dosage: 5-15ML TO BE TAKEN TWICE DAILY FOR CONSTIPATION
     Dates: start: 20211027
  13. LANSOPRAZOLE [Concomitant]
     Active Substance: LANSOPRAZOLE
     Dosage: TAKE ONE DAILY. TAKE ALONGSIDE ANTI-INFLAMMATOR...
     Dates: start: 20210730
  14. LOSARTAN [Concomitant]
     Active Substance: LOSARTAN
     Dosage: TAKE ONE DAILY
     Dates: start: 20201216
  15. METFORMIN [Concomitant]
     Active Substance: METFORMIN HYDROCHLORIDE
     Dosage: ONE TO BE TAKEN TWICE DAILY
     Dates: start: 20210330
  16. METHOTREXATE [Concomitant]
     Active Substance: METHOTREXATE
     Dosage: 8 WEEKLY. METHOTREXATE IS A HIGH-RISK DRUG. MAK...
     Dates: start: 20210122
  17. SODIUM ALGINATE [Concomitant]
     Active Substance: SODIUM ALGINATE
     Dosage: 5ML - 10ML 4 TIMES/DAY
     Dates: start: 20170323
  18. CARBOMER [Concomitant]
     Active Substance: CARBOMER
     Dosage: ONE DROP 3-4 TIMES DAILY
     Dates: start: 20190611

REACTIONS (3)
  - Vitreous floaters [Recovered/Resolved]
  - Blindness [Recovered/Resolved]
  - Dizziness [Recovered/Resolved]

NARRATIVE: CASE EVENT DATE: 20211106
